FAERS Safety Report 21689254 (Version 1)
Quarter: 2022Q4

REPORT INFORMATION
  Report Type: Spontaneous
  Country: US (occurrence: None)
  Receive Date: 20221206
  Receipt Date: 20221206
  Transmission Date: 20230112
  Serious: Yes (Disabling)
  Sender: FDA-Public Use
  Company Number: None

PATIENT
  Age: 65 Year
  Sex: Female

DRUGS (7)
  1. ESCITALOPRAM [Suspect]
     Active Substance: ESCITALOPRAM OXALATE
     Indication: Depression
     Dosage: OTHER QUANTITY : 1 TABLET(S);?FREQUENCY : DAILY;?
     Route: 048
     Dates: start: 20190904, end: 20220805
  2. ESCITALOPRAM [Suspect]
     Active Substance: ESCITALOPRAM OXALATE
     Indication: Post-traumatic stress disorder
  3. TEMAZEPAM [Concomitant]
     Active Substance: TEMAZEPAM
  4. CALCIUM [Concomitant]
     Active Substance: CALCIUM
  5. Mag [Concomitant]
  6. VITAMIN C [Concomitant]
     Active Substance: ASCORBIC ACID
  7. VITAMIN B12 [Concomitant]
     Active Substance: CYANOCOBALAMIN

REACTIONS (6)
  - Hyperhidrosis [None]
  - Loss of personal independence in daily activities [None]
  - Pain [None]
  - Loss of employment [None]
  - Decreased appetite [None]
  - Parkinson^s disease [None]

NARRATIVE: CASE EVENT DATE: 20190904
